FAERS Safety Report 7388913-2 (Version None)
Quarter: 2011Q2

REPORT INFORMATION
  Report Type: 
  Country: None (occurrence: None)
  Receive Date: 20110401
  Receipt Date: 20110328
  Transmission Date: 20111010
  Serious: Yes (Other)
  Sender: FDA-Public Use
  Company Number: FR-PFIZER INC-2011069192

PATIENT
  Age: 35 Year
  Sex: Female

DRUGS (5)
  1. EFFEXOR XR [Suspect]
     Indication: DEPRESSION
     Dosage: 75 MG, 1X/DAY
  2. EFFEXOR XR [Suspect]
     Dosage: 75 MG, 1X/DAY
  3. EFFEXOR XR [Suspect]
     Dosage: 37.5 MG, ALTERNATE DAY
  4. EFFEXOR XR [Suspect]
     Dosage: 150 MG, 1X/DAY
     Dates: start: 20100101
  5. EFFEXOR XR [Suspect]
     Dosage: 37.5 MG, 1X/DAY

REACTIONS (7)
  - DRUG WITHDRAWAL SYNDROME [None]
  - DEPRESSION [None]
  - CONSTIPATION [None]
  - DYSMENORRHOEA [None]
  - VERTIGO [None]
  - SUICIDAL IDEATION [None]
  - FEELING HOT [None]
